FAERS Safety Report 4376947-1 (Version None)
Quarter: 2004Q2

REPORT INFORMATION
  Report Type: 
  Country: None (occurrence: None)
  Receive Date: 20040614
  Receipt Date: 20040602
  Transmission Date: 20050107
  Serious: Yes (Hospitalization)
  Sender: FDA-Public Use
  Company Number: GB-BRISTOL-MYERS SQUIBB COMPANY-12604948

PATIENT
  Age: 82 Year
  Sex: Female

DRUGS (2)
  1. COAPROVEL TABS 300MG/12.5MG [Suspect]
     Indication: HYPERTENSION
     Dosage: 300/125MG TABLETS
     Route: 048
     Dates: start: 20031001
  2. TILDIEM RETARD [Concomitant]

REACTIONS (9)
  - ANOREXIA [None]
  - DIFFICULTY IN WALKING [None]
  - HEART RATE INCREASED [None]
  - HYPOAESTHESIA [None]
  - INSOMNIA [None]
  - MOVEMENT DISORDER [None]
  - MYALGIA [None]
  - PAIN [None]
  - WEIGHT DECREASED [None]
